FAERS Safety Report 4297237-1 (Version None)
Quarter: 2004Q1

REPORT INFORMATION
  Report Type: 
  Country: None (occurrence: None)
  Receive Date: 20040213
  Receipt Date: 20040204
  Transmission Date: 20041129
  Serious: Yes (Disabling)
  Sender: FDA-Public Use
  Company Number: HQ306610JUL2001

PATIENT
  Age: 47 Year
  Sex: Female

DRUGS (1)
  1. DIMETAPP [Suspect]
     Dosage: ORAL
     Route: 048
     Dates: start: 19901029

REACTIONS (1)
  - HAEMORRHAGIC STROKE [None]
